FAERS Safety Report 8696713 (Version 4)
Quarter: 2012Q4

REPORT INFORMATION
  Report Type: Spontaneous
  Country: JP (occurrence: None)
  Receive Date: 20120713
  Receipt Date: 20120823
  Transmission Date: 20130627
  Serious: Yes (Hospitalization)
  Sender: FDA-Public Use
  Company Number: JP-2012-15740

PATIENT
  Age: 87 Year
  Sex: Male
  Weight: 65 kg

DRUGS (4)
  1. PLETAL [Suspect]
     Indication: CEREBRAL INFARCTION
     Dosage: 200 MG MILLIGRAM(S), DAILY DOSE, ORAL
     Route: 048
  2. WARFARIN SODIUM [Suspect]
     Indication: ATRIAL FIBRILLATION
     Dosage: 2 MG MILLIGRAM(S), DAILY DOSE, ORAL
     Route: 048
  3. FLUITRAN (TRICHLORMETHIAZIDE) [Concomitant]
  4. SIGMART (NICORANDIL) [Concomitant]

REACTIONS (11)
  - Lower gastrointestinal haemorrhage [None]
  - Shock haemorrhagic [None]
  - Anaemia [None]
  - Extravasation [None]
  - Colon cancer [None]
  - International normalised ratio increased [None]
  - Treatment noncompliance [None]
  - Cyanosis [None]
  - Peripheral coldness [None]
  - Conjunctival haemorrhage [None]
  - Hypertension [None]
